FAERS Safety Report 24269396 (Version 1)
Quarter: 2024Q3

REPORT INFORMATION
  Report Type: Spontaneous
  Country: ES (occurrence: ES)
  Receive Date: 20240830
  Receipt Date: 20240830
  Transmission Date: 20241016
  Serious: Yes (Hospitalization)
  Sender: MYLAN
  Company Number: None

PATIENT
  Age: 77 Year
  Sex: Male

DRUGS (5)
  1. FUROSEMIDE [Suspect]
     Active Substance: FUROSEMIDE
     Indication: Hypertension
     Dosage: 20 MILLIGRAM, QD (1/2 TABLET, AT BREAKFAST )
     Route: 048
     Dates: start: 20231016
  2. RAMIPRIL [Suspect]
     Active Substance: RAMIPRIL
     Indication: Hypertension
     Dosage: 5 MILLIGRAM, QD (1 TABLET AT LUNCH)
     Route: 048
     Dates: start: 20240528
  3. HYDRALAZINE HYDROCHLORIDE [Concomitant]
     Active Substance: HYDRALAZINE HYDROCHLORIDE
     Indication: Hypertension
     Dosage: 1 DOSAGE FORM, QID (1 TABLET AT BREAKFAST-LUNCH-DINNER AND AT BEDTIME)
     Route: 048
     Dates: start: 20220608
  4. DOXAZOSINA NEO CINFA [Concomitant]
     Indication: Benign prostatic hyperplasia
     Dosage: 1 DOSAGE FORM, BID (1 TABLET AT BREAKFAST AND 1 TABLET AT DINNER  )
     Route: 048
     Dates: start: 20231016
  5. AMLODIPINE BESYLATE [Concomitant]
     Active Substance: AMLODIPINE BESYLATE
     Indication: Hypertension
     Dosage: 1 DOSAGE FORM, BID (1 TABLET AT BREAKFAST AND 1 TABLET AT DINNER)
     Route: 048
     Dates: start: 20220608

REACTIONS (1)
  - Acute kidney injury [Recovered/Resolved]

NARRATIVE: CASE EVENT DATE: 20240705
